FAERS Safety Report 10681283 (Version 2)
Quarter: 2014Q4

REPORT INFORMATION
  Report Type: Spontaneous
  Country: ES (occurrence: ES)
  Receive Date: 20141230
  Receipt Date: 20141230
  Transmission Date: 20150529
  Serious: Yes (Other)
  Sender: FDA-Public Use
  Company Number: ES-AUROBINDO-AUR-APL-2014-13013

PATIENT
  Age: 47 Year
  Sex: Male
  Weight: 87 kg

DRUGS (6)
  1. LEVETIRACETAM. [Suspect]
     Active Substance: LEVETIRACETAM
     Indication: GENERALISED TONIC-CLONIC SEIZURE
     Dosage: 1500 MG/12 HOURS
     Route: 065
  2. CLOBAZAM [Suspect]
     Active Substance: CLOBAZAM
     Indication: GENERALISED TONIC-CLONIC SEIZURE
     Dosage: 10 MG/12 H
     Route: 065
  3. VALPROIC ACID. [Suspect]
     Active Substance: VALPROIC ACID
     Indication: GENERALISED TONIC-CLONIC SEIZURE
     Dosage: 1000MG-500MG-500MG
     Route: 065
  4. CLOBAZAM [Suspect]
     Active Substance: CLOBAZAM
     Indication: SEIZURE
  5. VALPROIC ACID. [Suspect]
     Active Substance: VALPROIC ACID
     Indication: SEIZURE
  6. LEVETIRACETAM. [Suspect]
     Active Substance: LEVETIRACETAM
     Indication: SEIZURE

REACTIONS (11)
  - Respiratory rate decreased [Recovered/Resolved]
  - Mental impairment [Recovering/Resolving]
  - Bradyphrenia [Recovering/Resolving]
  - Ammonia increased [Recovering/Resolving]
  - Surgery [Recovering/Resolving]
  - Tremor [Recovering/Resolving]
  - Somnolence [Recovering/Resolving]
  - Fatigue [Recovered/Resolved]
  - Mental status changes [Recovering/Resolving]
  - Aphasia [Recovered/Resolved]
  - Encephalopathy [Recovering/Resolving]
